FAERS Safety Report 10387526 (Version 1)
Quarter: 2014Q3

REPORT INFORMATION
  Report Type: Spontaneous
  Country: US (occurrence: US)
  Receive Date: 20140815
  Receipt Date: 20140815
  Transmission Date: 20150326
  Serious: No
  Sender: FDA-Public Use
  Company Number: US-TARO-2014P1000370

PATIENT
  Sex: Female

DRUGS (1)
  1. LAMISIL [Suspect]
     Active Substance: TERBINAFINE HYDROCHLORIDE
     Indication: TINEA PEDIS
     Dosage: X1
     Route: 061
     Dates: start: 20140111, end: 20140111

REACTIONS (8)
  - Miliaria [Recovered/Resolved]
  - Pruritus [Recovered/Resolved]
  - Drug ineffective [Not Recovered/Not Resolved]
  - Burning sensation [Recovered/Resolved]
  - Erythema [Unknown]
  - Product quality issue [Unknown]
  - Malaise [Recovering/Resolving]
  - Tinea pedis [Recovering/Resolving]

NARRATIVE: CASE EVENT DATE: 201401
